FAERS Safety Report 22168211 (Version 2)
Quarter: 2024Q1

REPORT INFORMATION
  Report Type: Spontaneous
  Country: US (occurrence: US)
  Receive Date: 20230403
  Receipt Date: 20240208
  Transmission Date: 20240409
  Serious: No
  Sender: FDA-Public Use
  Company Number: US-PFIZER INC-PV202300058146

PATIENT
  Age: 91 Year
  Sex: Male

DRUGS (3)
  1. BOSULIF [Suspect]
     Active Substance: BOSUTINIB MONOHYDRATE
     Dosage: 300 MG, DAILY (3 TABLETS A DAY)
  2. BOSULIF [Suspect]
     Active Substance: BOSUTINIB MONOHYDRATE
     Dosage: 900 MG, WEEKLY (2 TABS, 2 TABS, 2.5 AND 2.5)
  3. BOSULIF [Suspect]
     Active Substance: BOSUTINIB MONOHYDRATE
     Dosage: TAKE ONE TAB DAILY

REACTIONS (4)
  - Intentional product misuse [Unknown]
  - Wrong technique in product usage process [Unknown]
  - Off label use [Unknown]
  - Abdominal discomfort [Unknown]
